FAERS Safety Report 12782987 (Version 1)
Quarter: 2016Q3

REPORT INFORMATION
  Report Type: Spontaneous
  Country: US (occurrence: US)
  Receive Date: 20160927
  Receipt Date: 20160927
  Transmission Date: 20161109
  Serious: No
  Sender: FDA-Public Use
  Company Number: US-PFIZER INC-2016447523

PATIENT
  Age: 77 Year

DRUGS (2)
  1. CEPHALEXIN. [Suspect]
     Active Substance: CEPHALEXIN
  2. NEURONTIN [Suspect]
     Active Substance: GABAPENTIN

REACTIONS (1)
  - Drug hypersensitivity [Unknown]
